FAERS Safety Report 7565524-7 (Version None)
Quarter: 2011Q2

REPORT INFORMATION
  Report Type: 
  Country: None (occurrence: None)
  Receive Date: 20110623
  Receipt Date: 20110616
  Transmission Date: 20111010
  Serious: Yes (Other)
  Sender: FDA-Public Use
  Company Number: DE-AMGEN-DEUSP2011023525

PATIENT
  Age: 51 Year
  Sex: Male

DRUGS (3)
  1. IMODIUM [Concomitant]
     Dosage: UNK
  2. ENBREL [Suspect]
     Indication: RHEUMATOID ARTHRITIS
     Dosage: 50 MG, WEEKLY
  3. PERENTEROL                         /00243701/ [Concomitant]
     Dosage: UNK

REACTIONS (3)
  - DIARRHOEA [None]
  - EYE DISORDER [None]
  - ROSACEA [None]
